FAERS Safety Report 16313331 (Version 1)
Quarter: 2019Q2

REPORT INFORMATION
  Report Type: Spontaneous
  Country: US (occurrence: US)
  Receive Date: 20190515
  Receipt Date: 20190515
  Transmission Date: 20190711
  Serious: No
  Sender: FDA-Public Use
  Company Number: US-BAYER-2019-096074

PATIENT
  Age: 91 Year
  Sex: Female
  Weight: 54 kg

DRUGS (7)
  1. ROSUVASTATIN. [Concomitant]
     Active Substance: ROSUVASTATIN
  2. LOSARTAN. [Concomitant]
     Active Substance: LOSARTAN
  3. METOPROLOL. [Concomitant]
     Active Substance: METOPROLOL
  4. MIRALAX [Suspect]
     Active Substance: POLYETHYLENE GLYCOL 3350
     Indication: GASTROINTESTINAL DISORDER
     Dosage: UNK
     Route: 048
  5. BAYER ASPIRIN [Concomitant]
     Active Substance: ASPIRIN
  6. VITAMIN D3 [Concomitant]
     Active Substance: CHOLECALCIFEROL
  7. MILK OF MAGNESIA [Suspect]
     Active Substance: MAGNESIUM HYDROXIDE
     Indication: GASTROINTESTINAL DISORDER
     Route: 048

REACTIONS (1)
  - Drug ineffective [Unknown]
